FAERS Safety Report 9664252 (Version 2)
Quarter: 2013Q4

REPORT INFORMATION
  Report Type: Spontaneous
  Country: PL (occurrence: PL)
  Receive Date: 20131101
  Receipt Date: 20131127
  Transmission Date: 20140711
  Serious: Yes (Other)
  Sender: FDA-Public Use
  Company Number: PL-ASTRAZENECA-2013SE78828

PATIENT
  Age: 58 Year
  Sex: Female

DRUGS (4)
  1. ANASTROZOLE [Suspect]
     Indication: BREAST CANCER
     Route: 048
  2. TAMOXIFEN [Suspect]
     Indication: BREAST CANCER
     Route: 048
  3. LETROZOLE [Concomitant]
  4. BISPHOSPHONATE [Concomitant]
     Dates: start: 201202

REACTIONS (1)
  - Plasma cell myeloma [Unknown]
